FAERS Safety Report 20961634 (Version 1)
Quarter: 2022Q2

REPORT INFORMATION
  Report Type: Spontaneous
  Country: US (occurrence: US)
  Receive Date: 20220615
  Receipt Date: 20220615
  Transmission Date: 20220721
  Serious: Yes (Hospitalization)
  Sender: FDA-Public Use
  Company Number: US-MYLANLABS-2022M1042973

PATIENT
  Sex: Female
  Weight: 53.52 kg

DRUGS (1)
  1. RIVASTIGMINE TRANSDERMAL SYSTEM [Suspect]
     Active Substance: RIVASTIGMINE
     Indication: Product used for unknown indication
     Dosage: 4.6 MILLIGRAM, QD, (4.6 MG/ 24 HOURS)
     Dates: start: 2015

REACTIONS (3)
  - Urinary tract infection [Unknown]
  - Application site erythema [Unknown]
  - Impaired healing [Unknown]
